FAERS Safety Report 25740470 (Version 1)
Quarter: 2025Q3

REPORT INFORMATION
  Report Type: Spontaneous
  Country: EU (occurrence: EU)
  Receive Date: 20250829
  Receipt Date: 20250829
  Transmission Date: 20251021
  Serious: Yes (Other)
  Sender: AMGEN
  Company Number: None

PATIENT
  Age: 61 Year
  Sex: Female
  Weight: 145.6 kg

DRUGS (3)
  1. NEULASTA [Suspect]
     Active Substance: PEGFILGRASTIM
     Indication: Prophylaxis
     Dosage: ONCE EVERY 3 WEEKS POST CHEMOTHERAPY TREATMENT OVER 12 WEEKS
     Route: 058
     Dates: start: 20250716, end: 20250716
  2. TAXOTERE [Concomitant]
     Active Substance: DOCETAXEL
     Indication: Breast cancer
     Route: 040
     Dates: start: 20250714
  3. CYCLOPHOSPHAMIDE [Concomitant]
     Active Substance: CYCLOPHOSPHAMIDE
     Indication: Breast cancer
     Route: 040
     Dates: start: 20250714

REACTIONS (9)
  - Fatigue [Unknown]
  - Feeding disorder [Unknown]
  - Abdominal distension [Unknown]
  - Swelling face [Unknown]
  - Abdominal pain [Unknown]
  - Asthenia [Unknown]
  - Nausea [Unknown]
  - Dyspnoea [Unknown]
  - Bone pain [Unknown]

NARRATIVE: CASE EVENT DATE: 20250716
